FAERS Safety Report 21949770 (Version 2)
Quarter: 2023Q2

REPORT INFORMATION
  Report Type: Spontaneous
  Country: US (occurrence: US)
  Receive Date: 20230203
  Receipt Date: 20230425
  Transmission Date: 20230721
  Serious: No
  Sender: FDA-Public Use
  Company Number: US-GLENMARK PHARMACEUTICALS-2022GMK076410

PATIENT

DRUGS (1)
  1. RYALTRIS [Suspect]
     Active Substance: MOMETASONE FUROATE MONOHYDRATE\OLOPATADINE HYDROCHLORIDE
     Indication: Hypersensitivity
     Dosage: 2 DOSAGE FORM, BID (TWO SPRAYS IN EACH NOSTRIL), THREE OR FOUR DAYS
     Route: 045

REACTIONS (2)
  - Upper respiratory tract irritation [Recovered/Resolved]
  - Product quality issue [Unknown]
